FAERS Safety Report 5946468-0 (Version None)
Quarter: 2008Q4

REPORT INFORMATION
  Report Type: 
  Country: None (occurrence: None)
  Receive Date: 20081110
  Receipt Date: 20081031
  Transmission Date: 20090506
  Serious: Yes (Hospitalization, Congenital Anomaly)
  Sender: FDA-Public Use
  Company Number: A0748053A

PATIENT
  Sex: Male

DRUGS (4)
  1. PAXIL [Suspect]
     Indication: DEPRESSION
     Dosage: 20MG VARIABLE DOSE
     Dates: start: 20030101, end: 20040101
  2. PAXIL CR [Suspect]
     Indication: DEPRESSION
     Dosage: 25MG VARIABLE DOSE
     Dates: start: 20030101, end: 20040101
  3. PAROXETINE HCL [Suspect]
     Indication: DEPRESSION
     Dosage: 30MG VARIABLE DOSE
     Dates: start: 20030101, end: 20040101
  4. VITAMIN AND MINERAL PRENATAL SUPPLEMENT W/ FOLIC ACID CAP [Concomitant]

REACTIONS (3)
  - DRUG EXPOSURE DURING PREGNANCY [None]
  - HEART DISEASE CONGENITAL [None]
  - SUPRAVENTRICULAR TACHYCARDIA [None]
